FAERS Safety Report 18095935 (Version 1)
Quarter: 2020Q3

REPORT INFORMATION
  Report Type: Spontaneous
  Country: US (occurrence: US)
  Receive Date: 20200730
  Receipt Date: 20200730
  Transmission Date: 20201103
  Serious: Yes (Other)
  Sender: FDA-Public Use
  Company Number: US-ELI_LILLY_AND_COMPANY-US202007010474

PATIENT
  Age: 70 Year
  Sex: Male

DRUGS (2)
  1. ACITRETIN. [Concomitant]
     Active Substance: ACITRETIN
     Indication: ERYTHRODERMIC PSORIASIS
     Dosage: UNK UNK, UNKNOWN
     Route: 065
  2. IXEKIZUMAB [Suspect]
     Active Substance: IXEKIZUMAB
     Indication: ERYTHRODERMIC PSORIASIS
     Dosage: UNK UNK, UNKNOWN
     Route: 058

REACTIONS (6)
  - Off label use [Unknown]
  - Pruritus [Unknown]
  - Dermatitis contact [Unknown]
  - Groin abscess [Recovered/Resolved]
  - Prostatomegaly [Unknown]
  - Herpes zoster [Unknown]
